FAERS Safety Report 16596484 (Version 1)
Quarter: 2019Q3

REPORT INFORMATION
  Report Type: Spontaneous
  Country: GB (occurrence: GB)
  Receive Date: 20190719
  Receipt Date: 20190719
  Transmission Date: 20191004
  Serious: Yes (Death, Hospitalization)
  Sender: FDA-Public Use
  Company Number: GB-ROCHE-2356482

PATIENT
  Age: 57 Year
  Sex: Male

DRUGS (3)
  1. MORPHINE [Concomitant]
     Active Substance: MORPHINE
     Indication: PAIN
     Route: 048
  2. BONVIVA [Suspect]
     Active Substance: IBANDRONATE SODIUM
     Indication: METASTASES TO BONE
     Route: 042
     Dates: start: 20060227, end: 20060301
  3. TAXOTERE [Concomitant]
     Active Substance: DOCETAXEL
     Indication: LUNG NEOPLASM MALIGNANT
     Route: 065
     Dates: start: 20050815

REACTIONS (3)
  - Sepsis [Not Recovered/Not Resolved]
  - Neuropathy peripheral [Unknown]
  - Death [Fatal]

NARRATIVE: CASE EVENT DATE: 20060301
